FAERS Safety Report 7767789-5 (Version None)
Quarter: 2011Q3

REPORT INFORMATION
  Report Type: 
  Country: None (occurrence: None)
  Receive Date: 20110922
  Receipt Date: 20110311
  Transmission Date: 20111222
  Serious: No
  Sender: FDA-Public Use
  Company Number: US-ASTRAZENECA-2011SE13811

PATIENT
  Age: 60 Year
  Sex: Female

DRUGS (2)
  1. SEROQUEL [Suspect]
     Route: 048
     Dates: start: 20110301
  2. SEROQUEL [Suspect]
     Route: 048

REACTIONS (5)
  - HEAD TITUBATION [None]
  - MENTAL IMPAIRMENT [None]
  - TREMOR [None]
  - INDIFFERENCE [None]
  - GAIT DISTURBANCE [None]
